FAERS Safety Report 9227517 (Version 2)
Quarter: 2013Q2

REPORT INFORMATION
  Report Type: Spontaneous
  Country: BR (occurrence: BR)
  Receive Date: 20130412
  Receipt Date: 20130423
  Transmission Date: 20140414
  Serious: Yes (Other)
  Sender: FDA-Public Use
  Company Number: BR-AMGEN-BRASP2012008859

PATIENT
  Age: 56 Year
  Sex: Female
  Weight: 89 kg

DRUGS (4)
  1. ENBREL [Suspect]
     Indication: RHEUMATOID ARTHRITIS
     Dosage: 50 MG, WEEKLY
     Route: 058
     Dates: start: 201210, end: 201301
  2. PURAN T4 [Concomitant]
     Dosage: 100MG, UNK
  3. PREDNISONE [Concomitant]
     Dosage: UNK
  4. SIMVASTATIN [Concomitant]
     Dosage: UNK

REACTIONS (7)
  - Dengue fever [Recovering/Resolving]
  - Meniscus injury [Unknown]
  - Gait disturbance [Unknown]
  - Product quality issue [Unknown]
  - Haematoma [Unknown]
  - Influenza [Unknown]
  - Injection site haematoma [Unknown]
